FAERS Safety Report 11928106 (Version 2)
Quarter: 2017Q2

REPORT INFORMATION
  Report Type: Report from Study
  Country: HU (occurrence: HU)
  Receive Date: 20160119
  Receipt Date: 20170630
  Transmission Date: 20170829
  Serious: Yes (Other)
  Sender: FDA-Public Use
  Company Number: HU-ASTELLAS-2016US001687

PATIENT
  Age: 41 Year
  Sex: Male
  Weight: 45 kg

DRUGS (1)
  1. TACROLIMUS. [Suspect]
     Active Substance: TACROLIMUS
     Indication: RENAL TRANSPLANT
     Route: 048
     Dates: start: 20150907, end: 20160112

REACTIONS (1)
  - Skin maceration [Not Recovered/Not Resolved]

NARRATIVE: CASE EVENT DATE: 20160112
